FAERS Safety Report 8092294-9 (Version None)
Quarter: 2012Q1

REPORT INFORMATION
  Report Type: 
  Country: None (occurrence: None)
  Receive Date: 20120129
  Receipt Date: 20111122
  Transmission Date: 20120608
  Serious: No
  Sender: FDA-Public Use
  Company Number: US-ABBOTT-11P-163-0876981-00

PATIENT
  Age: 45 Year
  Sex: Female

DRUGS (6)
  1. ZYRTEC [Concomitant]
     Indication: HYPERSENSITIVITY
  2. NEURONTIN [Concomitant]
     Indication: PRODUCT USED FOR UNKNOWN INDICATION
  3. PODOFILOX [Concomitant]
     Indication: SKIN PAPILLOMA
     Route: 061
  4. HUMIRA [Suspect]
     Indication: RHEUMATOID ARTHRITIS
     Dates: start: 20111012
  5. VIVELLE-DOT [Concomitant]
     Indication: PRODUCT USED FOR UNKNOWN INDICATION
     Dosage: APPLIED ON MON AND FRI
  6. PREDNISONE TAB [Concomitant]
     Indication: PRODUCT USED FOR UNKNOWN INDICATION

REACTIONS (3)
  - FEELING ABNORMAL [None]
  - AFFECT LABILITY [None]
  - SUICIDAL IDEATION [None]
